FAERS Safety Report 8895425 (Version 2)
Quarter: 2012Q4

REPORT INFORMATION
  Report Type: 
  Country: IT (occurrence: IT)
  Receive Date: 20121107
  Receipt Date: 20121109
  Transmission Date: 20130627
  Serious: Yes (Other)
  Sender: FDA-Public Use
  Company Number: PHHY2012IT101872

PATIENT
  Age: 71 Year
  Sex: Female

DRUGS (8)
  1. OXALIPLATIN [Suspect]
     Indication: RECTAL CANCER
     Dosage: 85 mg/m2, UNK
     Dates: start: 200702
  2. GEMCITABINE [Suspect]
     Indication: RECTAL CANCER
     Dosage: 1 g/m2 biweekly
     Dates: start: 200702
  3. CALCIUM FOLINATE [Suspect]
     Indication: RECTAL CANCER
     Dosage: 100 mg/m2, UNK
     Dates: start: 200702
  4. FLUOROURACIL [Suspect]
     Indication: RECTAL CANCER
     Dosage: 400 mg/m2, UNK
     Dates: start: 200702
  5. FLUOROURACIL [Suspect]
     Dosage: 800 mg/m2, UNK
  6. GRANULOCYTE-MACROPHAGE COLONY-STIMULATING FACTOR [Suspect]
     Indication: RECTAL CANCER
     Dosage: 100 ug, UNK
     Route: 058
     Dates: start: 200702
  7. INTERLEUKIN-2/DIPTHERIA TOXIN FUSION PROTEIN [Suspect]
     Indication: RECTAL CANCER
     Dosage: 0.5 ? 10^6 IU twice daily
     Route: 058
     Dates: start: 200702
  8. INTERLEUKIN-2/DIPTHERIA TOXIN FUSION PROTEIN [Suspect]
     Dosage: 0.5 MIU BID for 5 days a week and 3

REACTIONS (12)
  - Sjogren^s syndrome [Recovered/Resolved]
  - Xerophthalmia [Recovered/Resolved]
  - Arthralgia [Recovered/Resolved]
  - Joint swelling [Recovered/Resolved]
  - Joint stiffness [Recovered/Resolved]
  - Myalgia [Recovered/Resolved]
  - Paraesthesia [Recovered/Resolved]
  - Dry mouth [Recovered/Resolved]
  - Antinuclear antibody positive [Recovered/Resolved]
  - Dry eye [Recovered/Resolved]
  - Lacrimation decreased [Recovered/Resolved]
  - Musculoskeletal pain [Recovered/Resolved]
